FAERS Safety Report 11087393 (Version 2)
Quarter: 2015Q2

REPORT INFORMATION
  Report Type: Report from Study
  Country: US (occurrence: US)
  Receive Date: 20150504
  Receipt Date: 20150626
  Transmission Date: 20150821
  Serious: Yes (Hospitalization, Other)
  Sender: FDA-Public Use
  Company Number: US-SA-2013SA099944

PATIENT
  Age: 70 Year
  Sex: Female

DRUGS (1)
  1. AUBAGIO [Suspect]
     Active Substance: TERIFLUNOMIDE
     Indication: MULTIPLE SCLEROSIS
     Route: 048
     Dates: start: 20130914, end: 20150115

REACTIONS (5)
  - Diarrhoea [Not Recovered/Not Resolved]
  - Staphylococcal infection [Recovering/Resolving]
  - Flushing [Unknown]
  - Epistaxis [Recovered/Resolved]
  - Urinary tract infection [Not Recovered/Not Resolved]

NARRATIVE: CASE EVENT DATE: 201501
